FAERS Safety Report 22289890 (Version 2)
Quarter: 2023Q2

REPORT INFORMATION
  Report Type: Spontaneous
  Country: ES (occurrence: ES)
  Receive Date: 20230505
  Receipt Date: 20230626
  Transmission Date: 20230721
  Serious: Yes (Hospitalization, Other)
  Sender: FDA-Public Use
  Company Number: ES-002147023-NVSC2023ES099986

PATIENT
  Age: 44 Year
  Sex: Female

DRUGS (5)
  1. KISQALI [Suspect]
     Active Substance: RIBOCICLIB
     Indication: Hormone receptor positive breast cancer
     Dosage: 600 MG, Q24H
     Route: 048
     Dates: start: 202104
  2. KISQALI [Suspect]
     Active Substance: RIBOCICLIB
     Dosage: 600 MG, Q24H
     Route: 048
  3. EUTHYROX [Concomitant]
     Active Substance: LEVOTHYROXINE SODIUM
     Indication: Hypothyroidism
     Dosage: UNK
     Route: 065
  4. LETROZOLE [Concomitant]
     Active Substance: LETROZOLE
     Indication: Hormone receptor positive breast cancer
     Dosage: UNK
     Route: 065
     Dates: start: 202104
  5. GOSERELIN [Concomitant]
     Active Substance: GOSERELIN
     Indication: Hormone receptor positive breast cancer
     Dosage: UNK
     Route: 065
     Dates: start: 202104

REACTIONS (5)
  - Acute polyneuropathy [Recovered/Resolved]
  - Autoimmune disorder [Recovered/Resolved]
  - Influenza [Recovered/Resolved]
  - Metastases to central nervous system [Unknown]
  - Paraneoplastic syndrome [Unknown]

NARRATIVE: CASE EVENT DATE: 20221001
